FAERS Safety Report 21216268 (Version 1)
Quarter: 2022Q3

REPORT INFORMATION
  Report Type: Spontaneous
  Country: US (occurrence: US)
  Receive Date: 20220816
  Receipt Date: 20220816
  Transmission Date: 20221026
  Serious: Yes (Death, Hospitalization)
  Sender: FDA-Public Use
  Company Number: US-LEO Pharma-344715

PATIENT
  Age: 74 Year
  Sex: Male

DRUGS (3)
  1. DEVICE [Suspect]
     Active Substance: DEVICE
     Indication: Dermatitis atopic
  2. ADBRY [Suspect]
     Active Substance: TRALOKINUMAB-LDRM
     Indication: Dermatitis atopic
     Dates: start: 20220621, end: 20220705
  3. ADBRY [Suspect]
     Active Substance: TRALOKINUMAB-LDRM
     Indication: Dermatitis atopic
     Dates: start: 20220621, end: 20220705

REACTIONS (4)
  - Circulatory collapse [Fatal]
  - Sepsis [Fatal]
  - Pyrexia [Fatal]
  - Circulatory collapse [Fatal]

NARRATIVE: CASE EVENT DATE: 20220706
